FAERS Safety Report 5763227-2 (Version None)
Quarter: 2008Q2

REPORT INFORMATION
  Report Type: 
  Country: None (occurrence: None)
  Receive Date: 20080609
  Receipt Date: 20080530
  Transmission Date: 20081010
  Serious: Yes (Congenital Anomaly, Other)
  Sender: FDA-Public Use
  Company Number: US-ABBOTT-07P-163-0419528-00

PATIENT
  Age: 1 Day
  Sex: Male
  Weight: 3.49 kg

DRUGS (1)
  1. HUMIRA [Suspect]
     Indication: DRUG EXPOSURE DURING PREGNANCY
     Route: 064

REACTIONS (7)
  - ANAEMIA [None]
  - DRUG EXPOSURE DURING PREGNANCY [None]
  - INGUINAL HERNIA [None]
  - NEONATAL ASPIRATION [None]
  - RESPIRATORY DISORDER [None]
  - TRANSIENT TACHYPNOEA OF THE NEWBORN [None]
  - UMBILICAL CORD AROUND NECK [None]
